FAERS Safety Report 17933057 (Version 3)
Quarter: 2020Q3

REPORT INFORMATION
  Report Type: Spontaneous
  Country: DE (occurrence: DE)
  Receive Date: 20200623
  Receipt Date: 20200831
  Transmission Date: 20201103
  Serious: No
  Sender: FDA-Public Use
  Company Number: NVSC2020DE170089

PATIENT
  Sex: Male

DRUGS (1)
  1. MIFLONIDE BREEZHALER [Suspect]
     Active Substance: BUDESONIDE
     Indication: PRODUCT USED FOR UNKNOWN INDICATION
     Dosage: 460 UG
     Route: 065

REACTIONS (4)
  - Foreign body in respiratory tract [Unknown]
  - Device malfunction [Unknown]
  - Product physical issue [Unknown]
  - Product quality issue [Unknown]
